FAERS Safety Report 20574388 (Version 2)
Quarter: 2022Q1

REPORT INFORMATION
  Report Type: Spontaneous
  Country: ES (occurrence: ES)
  Receive Date: 20220309
  Receipt Date: 20220330
  Transmission Date: 20220424
  Serious: Yes (Other)
  Sender: FDA-Public Use
  Company Number: ES-SCALL-2022-ES-000020

PATIENT
  Age: 62 Year
  Sex: Female
  Weight: 50 kg

DRUGS (1)
  1. DUTASTERIDE [Suspect]
     Active Substance: DUTASTERIDE
     Indication: Androgenetic alopecia
     Dosage: 0.5 MG, QD
     Route: 048
     Dates: start: 20200915

REACTIONS (5)
  - Hemiparaesthesia [Unknown]
  - Vertigo [Unknown]
  - Dizziness [Unknown]
  - Nervousness [Unknown]
  - Off label use [Unknown]

NARRATIVE: CASE EVENT DATE: 20200915
